FAERS Safety Report 9813105 (Version 5)
Quarter: 2017Q1

REPORT INFORMATION
  Report Type: Spontaneous
  Country: US (occurrence: US)
  Receive Date: 20140113
  Receipt Date: 20170216
  Transmission Date: 20170429
  Serious: Yes (Hospitalization, Other)
  Sender: FDA-Public Use
  Company Number: US-009507513-1205USA03382

PATIENT
  Sex: Male
  Weight: 86.17 kg

DRUGS (5)
  1. PROPECIA [Suspect]
     Active Substance: FINASTERIDE
     Dosage: 1 MG, QD
     Route: 048
     Dates: start: 20080612, end: 20100629
  2. PROPECIA [Suspect]
     Active Substance: FINASTERIDE
     Dosage: 1 MG, QD
     Route: 048
     Dates: start: 200601, end: 20080405
  3. PROSCAR [Suspect]
     Active Substance: FINASTERIDE
     Route: 048
  4. PROPECIA [Suspect]
     Active Substance: FINASTERIDE
     Indication: ANDROGENETIC ALOPECIA
     Dosage: 1 MG, QD
     Route: 048
     Dates: start: 20031111, end: 20050216
  5. PROPECIA [Suspect]
     Active Substance: FINASTERIDE
     Indication: ALOPECIA
     Dosage: 1 MG, QD
     Route: 048
     Dates: start: 20050331, end: 20051019

REACTIONS (15)
  - Sexual dysfunction [Not Recovered/Not Resolved]
  - Testicular injury [Unknown]
  - Mental disorder [Unknown]
  - Sunburn [Unknown]
  - Alopecia [Recovering/Resolving]
  - Cognitive disorder [Not Recovered/Not Resolved]
  - Scrotal varicose veins [Unknown]
  - Appendicectomy [Unknown]
  - Erectile dysfunction [Not Recovered/Not Resolved]
  - Drug ineffective [Unknown]
  - Dermatitis [Unknown]
  - Knee operation [Unknown]
  - Libido disorder [Unknown]
  - Testicular pain [Unknown]
  - Eyelid cyst [Unknown]

NARRATIVE: CASE EVENT DATE: 20050222
